FAERS Safety Report 19462768 (Version 1)
Quarter: 2021Q2

REPORT INFORMATION
  Report Type: Spontaneous
  Country: JP (occurrence: JP)
  Receive Date: 20210625
  Receipt Date: 20210625
  Transmission Date: 20210717
  Serious: Yes (Hospitalization, Other)
  Sender: FDA-Public Use
  Company Number: JP-ROCHE-2854609

PATIENT
  Age: 45 Year
  Sex: Female
  Weight: 37 kg

DRUGS (12)
  1. GRANISETRON [Concomitant]
     Active Substance: GRANISETRON
  2. DAIKENCHUTO [Concomitant]
     Active Substance: HERBALS
  3. ACELIO [Concomitant]
     Active Substance: ACETAMINOPHEN
  4. EMEND [Concomitant]
     Active Substance: APREPITANT
  5. CARBOPLATIN. [Concomitant]
     Active Substance: CARBOPLATIN
  6. PACLITAXEL. [Concomitant]
     Active Substance: PACLITAXEL
  7. GASTER [Concomitant]
     Active Substance: FAMOTIDINE
  8. CALONAL [Concomitant]
     Active Substance: ACETAMINOPHEN
  9. SOSEGON [Concomitant]
     Active Substance: PENTAZOCINE
  10. DEXART [Concomitant]
     Active Substance: DEXAMETHASONE SODIUM PHOSPHATE
  11. AVASTIN [Suspect]
     Active Substance: BEVACIZUMAB
     Indication: CERVIX CARCINOMA
     Route: 041
     Dates: start: 20201013, end: 20210225
  12. TRAMAL [Concomitant]
     Active Substance: TRAMADOL

REACTIONS (3)
  - Acute abdomen [Unknown]
  - Enterocolitis [Unknown]
  - Gastrointestinal perforation [Not Recovered/Not Resolved]

NARRATIVE: CASE EVENT DATE: 202103
